FAERS Safety Report 8805920 (Version 2)
Quarter: 2012Q4

REPORT INFORMATION
  Report Type: Spontaneous
  Country: US (occurrence: None)
  Receive Date: 20120917
  Receipt Date: 20120925
  Transmission Date: 20130627
  Serious: Yes (Hospitalization)
  Sender: FDA-Public Use
  Company Number: UTC-023011

PATIENT
  Age: 61 Year
  Sex: Male
  Weight: 117.2 kg

DRUGS (2)
  1. TYVASO (6 MICROGRAM, AEROSOL FOR INHALATION) (TREPROSTINIL SODIUM) [Suspect]
     Indication: CHRONIC PULMONARY HEART DISEASE
     Dosage: 18-54 mcgs (4 in 1 D), Inhalation
     Route: 055
     Dates: start: 20120829
  2. LETAIRIS [Suspect]

REACTIONS (5)
  - Fatigue [None]
  - Fatigue [None]
  - Heart rate increased [None]
  - Dyspnoea [None]
  - Atrial flutter [None]
